FAERS Safety Report 8935164 (Version 1)
Quarter: 2012Q4

REPORT INFORMATION
  Report Type: 
  Country: GB (occurrence: GB)
  Receive Date: 20121129
  Receipt Date: 20121129
  Transmission Date: 20130627
  Serious: Yes (Hospitalization)
  Sender: FDA-Public Use
  Company Number: GB-PFIZER INC-2012296535

PATIENT
  Age: 46 Year
  Sex: Male
  Weight: 103 kg

DRUGS (5)
  1. GENOTROPIN [Suspect]
     Dosage: 0.6 mg, 1x/day, 7 injections/week
     Route: 058
     Dates: start: 20061021
  2. HYDROCORTISONE [Concomitant]
     Indication: ACTH DECREASED
     Dosage: UNK
     Dates: start: 20050527
  3. THYROXINE [Concomitant]
     Indication: THYROID STIMULATING HORMONE DECREASED
     Dosage: UNK
     Dates: start: 20050530
  4. THYROXINE [Concomitant]
     Indication: PRIMARY HYPOTHYROIDISM
  5. TESTOGEL [Concomitant]
     Indication: HYPOGONADISM
     Dosage: UNK
     Dates: start: 20080325

REACTIONS (1)
  - Abdominal pain [Unknown]
